FAERS Safety Report 25140633 (Version 2)
Quarter: 2025Q2

REPORT INFORMATION
  Report Type: Spontaneous
  Country: SG (occurrence: SG)
  Receive Date: 20250331
  Receipt Date: 20250404
  Transmission Date: 20250716
  Serious: Yes (Death, Life-Threatening, Hospitalization)
  Sender: PFIZER
  Company Number: SG-MLMSERVICE-20250319-PI450444-00059-1

PATIENT
  Age: 31 Year
  Sex: Female

DRUGS (12)
  1. SIROLIMUS [Suspect]
     Active Substance: SIROLIMUS
  2. RITUXIMAB [Suspect]
     Active Substance: RITUXIMAB
     Indication: Arthritis
     Route: 042
     Dates: start: 2024
  3. RITUXIMAB [Suspect]
     Active Substance: RITUXIMAB
     Indication: Osteoarthritis
  4. RITUXIMAB [Suspect]
     Active Substance: RITUXIMAB
     Indication: Arthritis
  5. RITUXIMAB [Suspect]
     Active Substance: RITUXIMAB
     Indication: Arthritis
  6. AZATHIOPRINE [Suspect]
     Active Substance: AZATHIOPRINE
  7. PREDNISOLONE [Suspect]
     Active Substance: PREDNISOLONE
     Indication: Arthritis
  8. PREDNISOLONE [Suspect]
     Active Substance: PREDNISOLONE
     Indication: Osteoarthritis
     Dosage: PREDNISOLONE UP TO 20 MG/DAY
     Dates: start: 2024
  9. PREDNISOLONE [Suspect]
     Active Substance: PREDNISOLONE
     Indication: Arthritis
  10. PREDNISOLONE [Suspect]
     Active Substance: PREDNISOLONE
     Indication: Arthritis
  11. DOXYCYCLINE [Suspect]
     Active Substance: DOXYCYCLINE
     Indication: Arthritis bacterial
     Dosage: 100 MG, 2X/DAY
     Route: 048
     Dates: start: 2024
  12. CEFTRIAXONE [Concomitant]
     Active Substance: CEFTRIAXONE
     Indication: Arthritis bacterial
     Route: 042
     Dates: start: 2024

REACTIONS (5)
  - Ureaplasma infection [Fatal]
  - Hyperammonaemic encephalopathy [Fatal]
  - Cardiac arrest [Fatal]
  - Hypotension [Fatal]
  - Status epilepticus [Unknown]

NARRATIVE: CASE EVENT DATE: 20240101
